FAERS Safety Report 9347802 (Version 1)
Quarter: 2013Q2

REPORT INFORMATION
  Report Type: Spontaneous
  Country: US (occurrence: US)
  Receive Date: 20130614
  Receipt Date: 20130614
  Transmission Date: 20140414
  Serious: No
  Sender: FDA-Public Use
  Company Number: US-PFIZER INC-2013175651

PATIENT
  Age: 61 Year
  Sex: Male
  Weight: 77.1 kg

DRUGS (1)
  1. DETROL LA [Suspect]
     Indication: BLADDER DILATATION
     Dosage: 4 MG, 1X/DAY
     Dates: start: 201305, end: 2013

REACTIONS (2)
  - Dysuria [Unknown]
  - Off label use [Unknown]
